FAERS Safety Report 9856067 (Version 3)
Quarter: 2014Q1

REPORT INFORMATION
  Report Type: Report from Study
  Country: NL (occurrence: NL)
  Receive Date: 20140130
  Receipt Date: 20140221
  Transmission Date: 20141002
  Serious: Yes (Death, Hospitalization, Other)
  Sender: FDA-Public Use
  Company Number: PHHY2013NL016814

PATIENT
  Sex: Female
  Weight: 94 kg

DRUGS (14)
  1. ZOMETA [Suspect]
     Indication: BREAST CANCER METASTATIC
     Dosage: 4 MG/100 ML, ONCE EVERY 28 DAYS
     Route: 042
  2. ZOMETA [Suspect]
     Dosage: 4 MG/100 ML, ONCE EVERY 28 DAYS
     Route: 042
     Dates: start: 20130118
  3. ZOMETA [Suspect]
     Dosage: 4 MG/100 ML, ONCE EVERY 6 WEEKS
     Route: 042
  4. ZOMETA [Suspect]
     Dosage: 4 MG/100 ML, ONCE EVERY 6 WEEKS
     Route: 042
     Dates: start: 20131031
  5. ZOMETA [Suspect]
     Dosage: 4 MG/100 ML, ONCE EVERY 6 WEEKS
     Route: 042
     Dates: start: 20131212, end: 20131212
  6. RAVOTRIL [Concomitant]
     Dosage: UNK UKN, UNK
  7. RITALIN [Concomitant]
     Dosage: UNK UKN, UNK
  8. METFORMIN [Concomitant]
     Dosage: UNK UKN, UNK
  9. LUCRIN [Concomitant]
     Dosage: UNK UKN, UNK
  10. ESOMEPRAZOLE [Concomitant]
     Dosage: 40 U
  11. DOMPERID//DOMPERIDONE [Concomitant]
     Dosage: 20 U
  12. AMLODIPINE [Concomitant]
     Dosage: 5 U
  13. DICLOFENAC [Concomitant]
     Dosage: UNK UKN, PRN
  14. CLONAZEPAM [Concomitant]
     Dosage: UNK UKN, UNK

REACTIONS (4)
  - Terminal state [Fatal]
  - Breast cancer metastatic [Recovering/Resolving]
  - Malignant neoplasm progression [Recovering/Resolving]
  - Somnolence [Unknown]
